FAERS Safety Report 17823618 (Version 1)
Quarter: 2020Q2

REPORT INFORMATION
  Report Type: Spontaneous
  Country: US (occurrence: US)
  Receive Date: 20200526
  Receipt Date: 20200526
  Transmission Date: 20200714
  Serious: No
  Sender: FDA-Public Use
  Company Number: US-PFIZER INC-2020201716

PATIENT
  Age: 71 Year
  Sex: Female
  Weight: 81.65 kg

DRUGS (1)
  1. PREGABALIN. [Suspect]
     Active Substance: PREGABALIN
     Indication: NEUROPATHY PERIPHERAL
     Dosage: 75 MG, DAILY
     Route: 048
     Dates: start: 20200513, end: 20200515

REACTIONS (7)
  - Gait disturbance [Recovered/Resolved]
  - Drug hypersensitivity [Unknown]
  - Headache [Recovered/Resolved]
  - Rash [Recovering/Resolving]
  - Somnolence [Recovered/Resolved with Sequelae]
  - Fatigue [Recovering/Resolving]
  - Dizziness [Recovered/Resolved]

NARRATIVE: CASE EVENT DATE: 20200514
